FAERS Safety Report 12062577 (Version 1)
Quarter: 2016Q1

REPORT INFORMATION
  Report Type: Spontaneous
  Country: RS (occurrence: RS)
  Receive Date: 20160210
  Receipt Date: 20160210
  Transmission Date: 20160526
  Serious: Yes (Death, Other)
  Sender: FDA-Public Use
  Company Number: RS-MYLANLABS-2016M1005285

PATIENT

DRUGS (3)
  1. GLICLAZIDE [Suspect]
     Active Substance: GLICLAZIDE
     Indication: PRODUCT USED FOR UNKNOWN INDICATION
     Dosage: 2.4 G (30 TABLETS)
     Route: 048
  2. METFORMIN [Suspect]
     Active Substance: METFORMIN HYDROCHLORIDE
     Indication: PRODUCT USED FOR UNKNOWN INDICATION
     Dosage: 10 G (20 TABLETS)
     Route: 048
  3. AMLODIPINE [Suspect]
     Active Substance: AMLODIPINE BESYLATE
     Indication: PRODUCT USED FOR UNKNOWN INDICATION
     Dosage: 150 MG (30 TABLETS)
     Route: 048

REACTIONS (7)
  - Cardiotoxicity [Fatal]
  - Toxicity to various agents [Unknown]
  - Cardiac arrest [Fatal]
  - Completed suicide [Fatal]
  - Intentional overdose [Unknown]
  - Metabolic acidosis [Unknown]
  - Hyperglycaemia [Unknown]
